FAERS Safety Report 20992728 (Version 1)
Quarter: 2022Q2

REPORT INFORMATION
  Report Type: Spontaneous
  Country: FR (occurrence: FR)
  Receive Date: 20220622
  Receipt Date: 20220622
  Transmission Date: 20220721
  Serious: Yes (Death)
  Sender: FDA-Public Use
  Company Number: None

PATIENT
  Age: 20 Year
  Sex: Male

DRUGS (5)
  1. ALPRAZOLAM [Suspect]
     Active Substance: ALPRAZOLAM
     Dosage: UNK
     Route: 065
  2. DIAZEPAM [Suspect]
     Active Substance: DIAZEPAM
     Dosage: UNK
     Route: 065
  3. 11-NOR-9-CARBOXY-.DELTA-9-TETRAHYDROCANNABINOL [Suspect]
     Active Substance: 11-NOR-9-CARBOXY-.DELTA-9-TETRAHYDROCANNABINOL
     Dosage: UNK
     Route: 065
  4. METHADONE HYDROCHLORIDE [Suspect]
     Active Substance: METHADONE HYDROCHLORIDE
     Dosage: 40 MG/ 15ML
     Route: 065
     Dates: start: 202205
  5. DRONABINOL [Suspect]
     Active Substance: DRONABINOL
     Dosage: UNK
     Route: 065

REACTIONS (3)
  - Asphyxia [Fatal]
  - Depressed level of consciousness [Fatal]
  - Drug abuse [Fatal]

NARRATIVE: CASE EVENT DATE: 20220501
